FAERS Safety Report 8345418-X (Version None)
Quarter: 2012Q2

REPORT INFORMATION
  Report Type: 
  Country: None (occurrence: None)
  Receive Date: 20120508
  Receipt Date: 20120423
  Transmission Date: 20120825
  Serious: Yes (Other)
  Sender: FDA-Public Use
  Company Number: US-SPECTRUM PHARMACEUTICALS, INC.-12-F-US-00052

PATIENT
  Sex: Female

DRUGS (3)
  1. ELOXATIN [Suspect]
     Indication: COLON CANCER
     Dosage: UNK
     Route: 065
  2. FLUOROURACIL [Suspect]
     Indication: COLON CANCER
     Dosage: UNK
     Route: 065
  3. FUSILEV [Suspect]
     Indication: COLON CANCER
     Dosage: 412 MG, SINGLE
     Route: 042
     Dates: start: 20120320, end: 20120320

REACTIONS (3)
  - DYSPNOEA [None]
  - PRURITUS [None]
  - INFUSION RELATED REACTION [None]
